FAERS Safety Report 17744897 (Version 2)
Quarter: 2020Q2

REPORT INFORMATION
  Report Type: Spontaneous
  Country: US (occurrence: US)
  Receive Date: 20200505
  Receipt Date: 20200512
  Transmission Date: 20200714
  Serious: No
  Sender: FDA-Public Use
  Company Number: US-PFIZER INC-2020159694

PATIENT
  Age: 74 Year
  Sex: Female
  Weight: 68 kg

DRUGS (5)
  1. XELJANZ XR [Suspect]
     Active Substance: TOFACITINIB CITRATE
     Indication: PAIN
     Dosage: 11 MG, 1X/DAY
     Route: 048
     Dates: start: 202002
  2. NORCO [Concomitant]
     Active Substance: ACETAMINOPHEN\HYDROCODONE BITARTRATE
     Indication: OSTEOARTHRITIS
  3. NEURONTIN [Concomitant]
     Active Substance: GABAPENTIN
     Indication: DIABETIC NEUROPATHY
     Dosage: 600 MG, 4X/DAY
     Dates: start: 2019
  4. NORCO [Concomitant]
     Active Substance: ACETAMINOPHEN\HYDROCODONE BITARTRATE
     Indication: DIABETIC NEUROPATHY
     Dosage: 10 MG, 2X/DAY
     Dates: start: 2019
  5. XELJANZ XR [Suspect]
     Active Substance: TOFACITINIB CITRATE
     Indication: RHEUMATOID ARTHRITIS

REACTIONS (8)
  - Disease progression [Unknown]
  - Pain in extremity [Unknown]
  - Grip strength decreased [Unknown]
  - Musculoskeletal pain [Unknown]
  - Contusion [Unknown]
  - Ligament sprain [Unknown]
  - Hand deformity [Unknown]
  - Fall [Unknown]

NARRATIVE: CASE EVENT DATE: 2020
